FAERS Safety Report 10241115 (Version 1)
Quarter: 2014Q2

REPORT INFORMATION
  Report Type: Other
  Country: US (occurrence: US)
  Receive Date: 20140617
  Receipt Date: 20140617
  Transmission Date: 20141212
  Serious: Yes (Hospitalization, Other)
  Sender: FDA-Public Use
  Company Number: US-SHIRE-US201403043

PATIENT
  Sex: Female
  Weight: 54.88 kg

DRUGS (6)
  1. ADDERALL XR [Suspect]
     Indication: ATTENTION DEFICIT/HYPERACTIVITY DISORDER
     Dosage: 30 MG, 1X/DAY:QD
     Route: 048
     Dates: start: 2006, end: 201402
  2. ADDERALL XR [Suspect]
     Dosage: 30 MG, 1X/DAY:QD
     Route: 048
     Dates: start: 201402
  3. BUPROPION [Concomitant]
     Indication: DEPRESSION
     Dosage: 300 MG, 1X/DAY:QD
     Route: 048
     Dates: start: 2006
  4. BUSPIRONE [Concomitant]
     Indication: DEPRESSION
     Dosage: 30 MG, 2X/DAY:BID
     Route: 048
     Dates: start: 2009
  5. XANAX [Concomitant]
     Indication: ANXIETY
     Dosage: 1 MG, 4X/DAY:QID
     Route: 048
     Dates: start: 2011
  6. ESCITALOPRAM [Concomitant]
     Indication: DEPRESSION
     Dosage: 20 MG, 1X/DAY:QD
     Route: 048
     Dates: start: 2013

REACTIONS (10)
  - Facial pain [Unknown]
  - Drug withdrawal syndrome [Recovered/Resolved]
  - Tooth disorder [Recovered/Resolved]
  - Oral pain [Recovered/Resolved]
  - Migraine [Not Recovered/Not Resolved]
  - Feeling abnormal [Recovered/Resolved]
  - Prescribed overdose [Not Recovered/Not Resolved]
  - Tremor [Recovered/Resolved]
  - Drug dose omission [Recovered/Resolved]
  - Anxiety [Recovered/Resolved]
